FAERS Safety Report 7493660-2 (Version None)
Quarter: 2011Q2

REPORT INFORMATION
  Report Type: 
  Country: None (occurrence: None)
  Receive Date: 20110520
  Receipt Date: 20110426
  Transmission Date: 20111010
  Serious: Yes (Hospitalization, Other)
  Sender: FDA-Public Use
  Company Number: US-BAYER-201013050NA

PATIENT
  Age: 40 Year
  Sex: Female
  Weight: 80.726 kg

DRUGS (15)
  1. LEVOTHROID [Concomitant]
     Dosage: 0.05 MG, QD
     Route: 048
  2. FISH OIL [Concomitant]
     Dosage: UNK UNK, QD
     Route: 048
  3. ALPRAZOLAM [Concomitant]
     Route: 048
  4. ACETAMINOPHEN [Concomitant]
     Dosage: UNK UNK, PRN
     Route: 048
  5. PROZAC [Concomitant]
     Dosage: 40 MG, QD
     Route: 048
  6. GLUCOPHAGE [Concomitant]
     Dosage: 500 MG, OM
     Route: 048
  7. ASPIRIN [Concomitant]
     Dosage: 81 MG, UNK
     Route: 048
  8. SULFA METH / TM [Concomitant]
     Dosage: UNK
     Dates: start: 20080123
  9. YASMIN [Suspect]
     Indication: MENSTRUATION IRREGULAR
  10. YASMIN [Suspect]
     Indication: PREMENSTRUAL SYNDROME
     Dosage: UNK UNK, QD
     Route: 048
     Dates: start: 20050901, end: 20100801
  11. GLUCOPHAGE [Concomitant]
     Dosage: 250 MG, HS
     Route: 048
  12. CRANBERRY [Concomitant]
     Dosage: UNK UNK, QD
     Route: 048
  13. GLIPIZIDE [Concomitant]
     Dosage: 5 MG, UNK
     Route: 048
  14. PRILOSEC [Concomitant]
     Dosage: 20 MG, QD
     Route: 048
  15. ZETIA [Concomitant]
     Dosage: 10 MG, QD
     Route: 048

REACTIONS (4)
  - ORGAN FAILURE [None]
  - GALLBLADDER DISORDER [None]
  - CHOLELITHIASIS [None]
  - CHOLECYSTITIS CHRONIC [None]
